FAERS Safety Report 7665027-5 (Version None)
Quarter: 2011Q3

REPORT INFORMATION
  Report Type: 
  Country: None (occurrence: None)
  Receive Date: 20110806
  Receipt Date: 20110103
  Transmission Date: 20111222
  Serious: No
  Sender: FDA-Public Use
  Company Number: US-ABBOTT-11P-163-0694640-00

PATIENT
  Sex: Female
  Weight: 99.88 kg

DRUGS (5)
  1. LISINOPRIL AND HYDROCHLOROTHIAZIDE [Concomitant]
     Indication: BLOOD PRESSURE
     Dosage: 40/25 DAILY
  2. PRILOSEC [Concomitant]
     Indication: PRODUCT USED FOR UNKNOWN INDICATION
  3. ASPIRIN [Concomitant]
     Indication: PRODUCT USED FOR UNKNOWN INDICATION
  4. TRAZODONE HCL [Concomitant]
     Indication: INSOMNIA
  5. NIASPAN [Suspect]
     Indication: BLOOD CHOLESTEROL ABNORMAL
     Dates: start: 20101228

REACTIONS (5)
  - SKIN BURNING SENSATION [None]
  - PAIN OF SKIN [None]
  - ERYTHEMA [None]
  - RASH [None]
  - DIZZINESS [None]
